FAERS Safety Report 5170834-7 (Version None)
Quarter: 2006Q4

REPORT INFORMATION
  Report Type: 
  Country: None (occurrence: None)
  Receive Date: 20061213
  Receipt Date: 20061207
  Transmission Date: 20070319
  Serious: Yes (Death)
  Sender: FDA-Public Use
  Company Number: 2006AC02302

PATIENT
  Age: 62 Year
  Sex: Female

DRUGS (5)
  1. ANASTRAZOLE [Suspect]
     Indication: BREAST CANCER STAGE III
     Route: 048
  2. ADRIAMYCIN PFS [Suspect]
     Indication: BREAST CANCER STAGE III
     Dosage: 6 CYCLES, ONCE IN 21 DAYS
  3. FLUOROURACIL [Suspect]
     Indication: BREAST CANCER STAGE III
     Dosage: 6 CYCLES, ONCE IN 21 DAYS
  4. CYCLOPHOSPHAMIDE [Suspect]
     Indication: BREAST CANCER STAGE III
     Dosage: 6 CYCLES, ONCE IN 21 DAYS
  5. RADIOTHERAPY [Suspect]
     Indication: BREAST CANCER STAGE III
     Dosage: 5000 CGY 36 DAYS

REACTIONS (5)
  - ACUTE MYELOID LEUKAEMIA [None]
  - GENERAL PHYSICAL HEALTH DETERIORATION [None]
  - INFECTION [None]
  - PYREXIA [None]
  - SOMNOLENCE [None]
